FAERS Safety Report 4363629-5 (Version None)
Quarter: 2004Q2

REPORT INFORMATION
  Report Type: 
  Country: None (occurrence: None)
  Receive Date: 20040524
  Receipt Date: 20040512
  Transmission Date: 20050107
  Serious: Yes (Hospitalization)
  Sender: FDA-Public Use
  Company Number: PHBS2004FI06388

PATIENT
  Age: 44 Year
  Sex: Female

DRUGS (1)
  1. LESCOL [Suspect]
     Dosage: 80 MG/DAY
     Route: 048
     Dates: start: 20040413, end: 20040504

REACTIONS (3)
  - ALANINE AMINOTRANSFERASE INCREASED [None]
  - BACK PAIN [None]
  - HAEMATURIA [None]
